FAERS Safety Report 12920617 (Version 3)
Quarter: 2016Q4

REPORT INFORMATION
  Report Type: Report from Study
  Country: KR (occurrence: KR)
  Receive Date: 20161108
  Receipt Date: 20161128
  Transmission Date: 20170207
  Serious: Yes (Death)
  Sender: FDA-Public Use
  Company Number: KR-BAXTER-2016BAX055950

PATIENT
  Age: 45 Year
  Sex: Female

DRUGS (5)
  1. UROMITEXAN INJ. (MESNA) [Suspect]
     Active Substance: MESNA
     Indication: PROPHYLAXIS
     Dosage: DAYS 1-3
     Route: 042
  2. METHOTREXATE. [Suspect]
     Active Substance: METHOTREXATE
     Indication: NATURAL KILLER-CELL LYMPHOBLASTIC LYMPHOMA
     Dosage: ON DAY 3 AND 10
     Route: 042
  3. ETOPOSIDE. [Suspect]
     Active Substance: ETOPOSIDE
     Indication: NATURAL KILLER-CELL LYMPHOBLASTIC LYMPHOMA
     Dosage: ON DAYS 1-3
     Route: 042
  4. PREDNISOLONE. [Suspect]
     Active Substance: PREDNISOLONE
     Indication: NATURAL KILLER-CELL LYMPHOBLASTIC LYMPHOMA
     Dosage: ON DAYS 1-5
     Route: 048
  5. HOLOXAN 1000MG INJ (IFOSFAMIDE) [Suspect]
     Active Substance: IFOSFAMIDE
     Indication: NATURAL KILLER-CELL LYMPHOBLASTIC LYMPHOMA
     Dosage: 1.5 GRAM/M2 ON DAYS 1-3
     Route: 042

REACTIONS (2)
  - Sepsis [Fatal]
  - Pneumonia [Fatal]
